FAERS Safety Report 5944268-9 (Version None)
Quarter: 2008Q4

REPORT INFORMATION
  Report Type: 
  Country: None (occurrence: None)
  Receive Date: 20081104
  Receipt Date: 20081022
  Transmission Date: 20090506
  Serious: Yes (Hospitalization, Other)
  Sender: FDA-Public Use
  Company Number: ENT2008-0102

PATIENT
  Age: 76 Year
  Sex: Female

DRUGS (10)
  1. COMTAN [Suspect]
     Indication: DRUG EFFECT DECREASED
     Dosage: 100 MG DAILY, ORAL, 100 MG, BID
     Route: 048
     Dates: start: 20080602, end: 20080606
  2. COMTAN [Suspect]
     Indication: PARKINSON'S DISEASE
     Dosage: 100 MG DAILY, ORAL, 100 MG, BID
     Route: 048
     Dates: start: 20080602, end: 20080606
  3. LEVODOPA [Concomitant]
  4. DOPAMINE HCL [Concomitant]
  5. CARBIDOPA + LEVODOPA [Concomitant]
  6. PRAMIPEXOLE DIHYDROCHLORIDE [Concomitant]
  7. DEPAS [Concomitant]
  8. PAXIL [Concomitant]
  9. FAMOSTAGINE [Concomitant]
  10. ALOSENN [Concomitant]

REACTIONS (3)
  - FALL [None]
  - HALLUCINATION [None]
  - HUMERUS FRACTURE [None]
